FAERS Safety Report 23387251 (Version 1)
Quarter: 2024Q1

REPORT INFORMATION
  Report Type: Spontaneous
  Country: US (occurrence: None)
  Receive Date: 20240109
  Receipt Date: 20240109
  Transmission Date: 20240410
  Serious: No
  Sender: FDA-Public Use
  Company Number: None

PATIENT
  Sex: Female

DRUGS (1)
  1. KISQALI [Suspect]
     Active Substance: RIBOCICLIB
     Indication: Neoplasm malignant
     Dosage: 600MG ONCE DAILY BY MOUTH
     Route: 048
     Dates: start: 202311

REACTIONS (4)
  - Thrombosis [None]
  - Pulmonary oedema [None]
  - Therapy interrupted [None]
  - Cough [None]
